FAERS Safety Report 22737971 (Version 2)
Quarter: 2024Q4

REPORT INFORMATION
  Report Type: Spontaneous
  Country: ES (occurrence: ES)
  Receive Date: 20230721
  Receipt Date: 20241230
  Transmission Date: 20250115
  Serious: Yes (Hospitalization, Other)
  Sender: TAKEDA
  Company Number: None

PATIENT
  Age: 31 Year
  Sex: Female

DRUGS (3)
  1. MESALAMINE [Suspect]
     Active Substance: MESALAMINE
     Indication: Proctitis ulcerative
     Dosage: 1 GRAM, QD
     Route: 061
     Dates: start: 202202, end: 202207
  2. MESALAMINE [Suspect]
     Active Substance: MESALAMINE
     Dosage: 3 GRAM, QD
     Dates: start: 20220216, end: 202207
  3. MESALAMINE [Suspect]
     Active Substance: MESALAMINE
     Indication: Proctitis ulcerative
     Dosage: 3 GRAM, QD

REACTIONS (6)
  - Oesophageal ulcer [Recovered/Resolved]
  - Pyrexia [Unknown]
  - Aphthous ulcer [Recovering/Resolving]
  - Oesophagitis ulcerative [Recovered/Resolved]
  - Weight decreased [Unknown]
  - Odynophagia [Recovered/Resolved]

NARRATIVE: CASE EVENT DATE: 20220601
